FAERS Safety Report 7129387-6 (Version None)
Quarter: 2010Q4

REPORT INFORMATION
  Report Type: 
  Country: None (occurrence: None)
  Receive Date: 20101130
  Receipt Date: 20101117
  Transmission Date: 20110411
  Serious: No
  Sender: FDA-Public Use
  Company Number: US-PFIZER INC-2010152122

PATIENT

DRUGS (2)
  1. EFFEXOR [Suspect]
     Dosage: UNKNOWN
  2. SILDENAFIL CITRATE [Concomitant]

REACTIONS (1)
  - TINNITUS [None]
